FAERS Safety Report 14538225 (Version 1)
Quarter: 2018Q1

REPORT INFORMATION
  Report Type: Spontaneous
  Country: GB (occurrence: GB)
  Receive Date: 20180216
  Receipt Date: 20180216
  Transmission Date: 20180509
  Serious: Yes (Other)
  Sender: FDA-Public Use
  Company Number: GB-ALKEM LABORATORIES LIMITED-GB-ALKEM-2017-01286

PATIENT
  Age: 62 Year
  Sex: Female
  Weight: 95 kg

DRUGS (4)
  1. METRONIDAZOLE. [Suspect]
     Active Substance: METRONIDAZOLE
     Indication: ABDOMINAL PAIN LOWER
     Dosage: 1200 MG, 5 DAY COURSE
     Route: 065
     Dates: start: 20171019, end: 20171020
  2. BRINZOLAMIDE [Concomitant]
     Active Substance: BRINZOLAMIDE
     Indication: OPTIC ATROPHY
     Dosage: UNK
     Route: 065
  3. CEPHALEXIN. [Suspect]
     Active Substance: CEPHALEXIN
     Indication: ABDOMINAL PAIN LOWER
     Dosage: 1500 MG, 5 DAY COURSE
     Route: 065
     Dates: start: 20171019, end: 20171020
  4. XALATAN [Concomitant]
     Active Substance: LATANOPROST
     Indication: OPTIC ATROPHY
     Dosage: UNK

REACTIONS (2)
  - Pruritus [Not Recovered/Not Resolved]
  - Rash papular [Not Recovered/Not Resolved]
